FAERS Safety Report 21907853 (Version 1)
Quarter: 2023Q1

REPORT INFORMATION
  Report Type: Spontaneous
  Country: US (occurrence: US)
  Receive Date: 20230125
  Receipt Date: 20230125
  Transmission Date: 20230418
  Serious: Yes (Hospitalization)
  Sender: FDA-Public Use
  Company Number: US-GLAXOSMITHKLINE-US2023007532

PATIENT

DRUGS (1)
  1. TRELEGY ELLIPTA [Suspect]
     Active Substance: FLUTICASONE FUROATE\UMECLIDINIUM BROMIDE\VILANTEROL TRIFENATATE
     Indication: Product used for unknown indication
     Dosage: USE ONE INHALATION BY MOUTH INTO THE LUNGS DAILY  TRELEGY ELLIPTA 100-62.5MCG INH 30P
     Dates: start: 20220113

REACTIONS (1)
  - Abdominal discomfort [Unknown]
